FAERS Safety Report 12299221 (Version 3)
Quarter: 2016Q3

REPORT INFORMATION
  Report Type: Spontaneous
  Country: GR (occurrence: GR)
  Receive Date: 20160425
  Receipt Date: 20160711
  Transmission Date: 20161109
  Serious: Yes (Death, Hospitalization)
  Sender: FDA-Public Use
  Company Number: PHHY2016GR048411

PATIENT
  Age: 4 Year
  Sex: Female
  Weight: 19.5 kg

DRUGS (3)
  1. EXJADE [Suspect]
     Active Substance: DEFERASIROX
     Dosage: 33 MG/KG, QD
     Route: 048
     Dates: start: 201601, end: 20160327
  2. PARACETAMOL [Concomitant]
     Active Substance: ACETAMINOPHEN
     Indication: PRODUCT USED FOR UNKNOWN INDICATION
     Route: 065
  3. EXJADE [Suspect]
     Active Substance: DEFERASIROX
     Indication: CHELATION THERAPY
     Dosage: 20 MG/KG, QD
     Route: 048
     Dates: start: 201406, end: 201601

REACTIONS (31)
  - Blood creatinine increased [Fatal]
  - Lactic acidosis [Unknown]
  - Septic shock [Unknown]
  - Renal failure [Fatal]
  - Hypoglycaemia [Fatal]
  - Hypoalbuminaemia [Fatal]
  - Hypokalaemia [Fatal]
  - Vomiting [Unknown]
  - Hyperammonaemia [Unknown]
  - Mental status changes [Unknown]
  - Nausea [Fatal]
  - Multiple organ dysfunction syndrome [Fatal]
  - Depressed level of consciousness [Unknown]
  - Somnolence [Unknown]
  - Hypotension [Fatal]
  - Hepatic failure [Fatal]
  - Stupor [Unknown]
  - Procalcitonin increased [Unknown]
  - Metabolic acidosis [Fatal]
  - Hypomagnesaemia [Fatal]
  - Coma [Unknown]
  - Fatigue [Fatal]
  - Anuria [Fatal]
  - Prothrombin time prolonged [Fatal]
  - Blood lactate dehydrogenase increased [Fatal]
  - Pyrexia [Unknown]
  - Lethargy [Fatal]
  - Activated partial thromboplastin time prolonged [Fatal]
  - Decreased appetite [Fatal]
  - Hypotonia [Unknown]
  - Acute kidney injury [Unknown]

NARRATIVE: CASE EVENT DATE: 20160327
